FAERS Safety Report 15408378 (Version 1)
Quarter: 2018Q3

REPORT INFORMATION
  Report Type: Spontaneous
  Country: US (occurrence: US)
  Receive Date: 20180920
  Receipt Date: 20180920
  Transmission Date: 20181010
  Serious: No
  Sender: FDA-Public Use
  Company Number: US-TEVA-2018-US-954745

PATIENT
  Sex: Female

DRUGS (2)
  1. LORAZEPAM. [Suspect]
     Active Substance: LORAZEPAM
     Route: 065
  2. ATENOLOL. [Concomitant]
     Active Substance: ATENOLOL

REACTIONS (4)
  - Drug ineffective [Unknown]
  - Nightmare [Unknown]
  - Palpitations [Unknown]
  - Product physical issue [Unknown]

NARRATIVE: CASE EVENT DATE: 2016
